FAERS Safety Report 19380745 (Version 3)
Quarter: 2023Q1

REPORT INFORMATION
  Report Type: Spontaneous
  Country: AT (occurrence: AT)
  Receive Date: 20210607
  Receipt Date: 20230227
  Transmission Date: 20230417
  Serious: Yes (Death, Other)
  Sender: FDA-Public Use
  Company Number: AT-NOVARTISPH-NVSC2021AT119639

PATIENT
  Age: 51 Year
  Sex: Female

DRUGS (11)
  1. CARBOPLATIN [Suspect]
     Active Substance: CARBOPLATIN
     Indication: Follicular lymphoma
     Dosage: UNK (AUC 5 AT DAY 2)
     Route: 065
  2. CARBOPLATIN [Suspect]
     Active Substance: CARBOPLATIN
     Indication: Diffuse large B-cell lymphoma
  3. RITUXIMAB [Suspect]
     Active Substance: RITUXIMAB
     Indication: Follicular lymphoma
     Dosage: UNK
     Route: 065
  4. RITUXIMAB [Suspect]
     Active Substance: RITUXIMAB
     Indication: Diffuse large B-cell lymphoma
  5. ETOPOSIDE [Suspect]
     Active Substance: ETOPOSIDE
     Indication: Follicular lymphoma
     Dosage: 100 MG/M2 (AT DAY 1-3)
     Route: 065
  6. ETOPOSIDE [Suspect]
     Active Substance: ETOPOSIDE
     Indication: Diffuse large B-cell lymphoma
  7. IFOSFAMIDE [Suspect]
     Active Substance: IFOSFAMIDE
     Indication: Follicular lymphoma
     Dosage: 5000 MG/M2 (DAY 2)
     Route: 065
  8. IFOSFAMIDE [Suspect]
     Active Substance: IFOSFAMIDE
     Indication: Diffuse large B-cell lymphoma
  9. OBINUTUZUMAB [Suspect]
     Active Substance: OBINUTUZUMAB
     Indication: Stem cell transplant
     Dosage: UNK (MAINTAINED AT A FREQUENCY OF EVERY 2 MONTHS)
     Route: 042
     Dates: start: 20200221
  10. OBINUTUZUMAB [Suspect]
     Active Substance: OBINUTUZUMAB
     Indication: Diffuse large B-cell lymphoma
     Dosage: UNK (CYCLES 1-3 G-CHOP)
     Route: 042
     Dates: start: 202002, end: 202004
  11. OBINUTUZUMAB [Suspect]
     Active Substance: OBINUTUZUMAB
     Dosage: UNK (CYCLES 4-6 G-CHOP)
     Route: 042
     Dates: start: 202004, end: 202006

REACTIONS (23)
  - Ascites [Fatal]
  - Blood creatinine increased [Fatal]
  - Abdominal lymphadenopathy [Fatal]
  - Malignant transformation [Fatal]
  - Peripheral swelling [Fatal]
  - Angiopathy [Fatal]
  - Thrombocytopenia [Recovered/Resolved]
  - Neutropenia [Recovered/Resolved]
  - Urinary tract obstruction [Unknown]
  - Anaemia [Recovered/Resolved]
  - Febrile neutropenia [Unknown]
  - Haematuria [Unknown]
  - Pyelonephritis [Unknown]
  - Hydronephrosis [Unknown]
  - Cytokine release syndrome [Unknown]
  - Colitis [Unknown]
  - C-reactive protein increased [Unknown]
  - Tinnitus [Unknown]
  - Urinary tract disorder [Unknown]
  - Abdominal pain lower [Unknown]
  - Pyrexia [Unknown]
  - Vomiting [Unknown]
  - Off label use [Unknown]

NARRATIVE: CASE EVENT DATE: 20210315
